FAERS Safety Report 4945853-3 (Version None)
Quarter: 2006Q1

REPORT INFORMATION
  Report Type: 
  Country: None (occurrence: None)
  Receive Date: 20060117
  Receipt Date: 20050201
  Transmission Date: 20060701
  Serious: Yes (Other)
  Sender: FDA-Public Use
  Company Number: A03200500316

PATIENT
  Age: 67 Year
  Sex: Female
  Weight: 71.6683 kg

DRUGS (5)
  1. PLAVIX [Suspect]
     Indication: TRANSIENT ISCHAEMIC ATTACK
     Dosage: 75MG QD ORAL
     Route: 048
     Dates: start: 19980101, end: 19990101
  2. ACETYLSALICYLIC ACID SRT [Concomitant]
  3. GLIBENCLAMIDE [Concomitant]
  4. VERAPAMIL [Concomitant]
  5. SIMVASTATIN [Concomitant]

REACTIONS (1)
  - TRANSIENT ISCHAEMIC ATTACK [None]
